FAERS Safety Report 8325243-6 (Version None)
Quarter: 2012Q2

REPORT INFORMATION
  Report Type: 
  Country: None (occurrence: None)
  Receive Date: 20120501
  Receipt Date: 20120417
  Transmission Date: 20120825
  Serious: Yes (Hospitalization, Disabling)
  Sender: FDA-Public Use
  Company Number: IL-ROCHE-1044899

PATIENT
  Sex: Female

DRUGS (2)
  1. PEGASYS [Suspect]
     Indication: HEPATITIS C
     Dosage: DATE OF LAST DOSE PRIOR TO SAE: 20/FEB/2012
     Route: 065
     Dates: start: 20110327, end: 20120220
  2. COPEGUS [Suspect]
     Indication: HEPATITIS C
     Dosage: DATE OF LAST DOSE PRIOR TO SAE: 20/FEB/2012
     Route: 065
     Dates: start: 20110327, end: 20120220

REACTIONS (2)
  - CRYOGLOBULINAEMIA [None]
  - VASCULITIS [None]
